FAERS Safety Report 6584610-1 (Version None)
Quarter: 2010Q1

REPORT INFORMATION
  Report Type: 
  Country: None (occurrence: None)
  Receive Date: 20100213
  Receipt Date: 20100213
  Transmission Date: 20100710
  Serious: Yes (Life-Threatening, Hospitalization, Disabling, Other)
  Sender: FDA-Public Use
  Company Number: None

PATIENT
  Age: 35 Year
  Sex: Female
  Weight: 63.5036 kg

DRUGS (3)
  1. CYMBALTA [Suspect]
     Indication: BIPOLAR I DISORDER
     Dosage: 60 MG PO DAILY
     Route: 048
     Dates: start: 20000101
  2. LEXAPRO [Suspect]
  3. GEODON [Suspect]

REACTIONS (1)
  - IMPAIRED GASTRIC EMPTYING [None]
